FAERS Safety Report 9612965 (Version 1)
Quarter: 2013Q4

REPORT INFORMATION
  Report Type: Other
  Country: JP (occurrence: JP)
  Receive Date: 20131010
  Receipt Date: 20131010
  Transmission Date: 20140711
  Serious: Yes (Hospitalization)
  Sender: FDA-Public Use
  Company Number: JP-ACTELION-A-CH2013-89498

PATIENT
  Age: 78 Year
  Sex: Male

DRUGS (3)
  1. TRACLEER [Suspect]
     Indication: PULMONARY HYPERTENSION
     Dosage: UNK
     Route: 048
  2. WARFARIN [Concomitant]
  3. BERAPROST [Concomitant]

REACTIONS (5)
  - Condition aggravated [Recovering/Resolving]
  - Angioplasty [Recovering/Resolving]
  - Pulmonary vascular resistance abnormality [Recovering/Resolving]
  - Cardiac output decreased [Recovering/Resolving]
  - Pulmonary arterial pressure increased [Recovering/Resolving]
